FAERS Safety Report 10037394 (Version 2)
Quarter: 2014Q2

REPORT INFORMATION
  Report Type: Spontaneous
  Country: US (occurrence: US)
  Receive Date: 20140326
  Receipt Date: 20140425
  Transmission Date: 20141212
  Serious: Yes (Hospitalization)
  Sender: FDA-Public Use
  Company Number: US-UCBSA-115550

PATIENT
  Age: 78 Year
  Sex: Male

DRUGS (2)
  1. NEUPRO [Suspect]
     Indication: PARKINSON^S DISEASE
     Dosage: VARYING STRENGTHS FROM 1 MG TO 8 MG.
     Dates: end: 201403
  2. NEUPRO [Suspect]
     Indication: PARKINSON^S DISEASE
     Dates: start: 2014, end: 2014

REACTIONS (2)
  - Peripheral swelling [Recovered/Resolved]
  - Memory impairment [Not Recovered/Not Resolved]
